FAERS Safety Report 19705018 (Version 1)
Quarter: 2021Q3

REPORT INFORMATION
  Report Type: Spontaneous
  Country: ES (occurrence: ES)
  Receive Date: 20210816
  Receipt Date: 20210816
  Transmission Date: 20211014
  Serious: Yes (Other)
  Sender: FDA-Public Use
  Company Number: ES-AUROBINDO-AUR-APL-2021-034663

PATIENT
  Age: 66 Year
  Sex: Female

DRUGS (4)
  1. PAROXETINE. [Suspect]
     Active Substance: PAROXETINE
     Indication: PRODUCT USED FOR UNKNOWN INDICATION
     Dosage: 40 MILLIGRAM
     Route: 065
  2. BRINTELLIX [Suspect]
     Active Substance: VORTIOXETINE HYDROBROMIDE
     Indication: ANTIDEPRESSANT THERAPY
     Dosage: 0.5 DOSAGE FORM, ONCE A DAY
     Route: 065
  3. BRINTELLIX [Suspect]
     Active Substance: VORTIOXETINE HYDROBROMIDE
     Indication: PRODUCT USED FOR UNKNOWN INDICATION
     Dosage: 1 DOSAGE FORM, ONCE A DAY
     Route: 065
  4. PAROXETINE. [Suspect]
     Active Substance: PAROXETINE
     Indication: ANTIDEPRESSANT THERAPY
     Dosage: 20 MILLIGRAM
     Route: 065

REACTIONS (13)
  - Wrong technique in product usage process [Unknown]
  - Breast enlargement [Unknown]
  - Decreased appetite [Unknown]
  - Suicidal ideation [Unknown]
  - Crying [Unknown]
  - Blood prolactin increased [Unknown]
  - Epistaxis [Unknown]
  - Feeling abnormal [Unknown]
  - Diarrhoea [Recovering/Resolving]
  - Head discomfort [Unknown]
  - Feeling drunk [Unknown]
  - Developmental regression [Unknown]
  - Platelet count decreased [Recovered/Resolved]
